FAERS Safety Report 20317164 (Version 1)
Quarter: 2022Q1

REPORT INFORMATION
  Report Type: Spontaneous
  Country: US (occurrence: US)
  Receive Date: 20220110
  Receipt Date: 20220110
  Transmission Date: 20220423
  Serious: No
  Sender: FDA-Public Use
  Company Number: US-TEVA-2021-US-1993692

PATIENT
  Age: 39 Year
  Sex: Female
  Weight: 80.29 kg

DRUGS (1)
  1. AJOVY [Suspect]
     Active Substance: FREMANEZUMAB-VFRM
     Indication: Migraine
     Dosage: 225/1.5 MG/ML/ STARTED FIVE YEARS AGO
     Route: 065

REACTIONS (3)
  - Injection site urticaria [Recovering/Resolving]
  - Injection site bruising [Unknown]
  - Product administration error [Unknown]
